FAERS Safety Report 4507856-2 (Version None)
Quarter: 2004Q4

REPORT INFORMATION
  Report Type: 
  Country: None (occurrence: None)
  Receive Date: 20041123
  Receipt Date: 20041116
  Transmission Date: 20050328
  Serious: Yes (Other)
  Sender: FDA-Public Use
  Company Number: PHHO2004CA16381

PATIENT
  Age: 71 Year
  Sex: Male

DRUGS (1)
  1. DIOVAN [Suspect]
     Dosage: 80 MG, UNK
     Dates: start: 20041008, end: 20041112

REACTIONS (4)
  - DYSPNOEA [None]
  - FLUID RETENTION [None]
  - RASH [None]
  - URTICARIA [None]
